FAERS Safety Report 6333218-1 (Version None)
Quarter: 2009Q3

REPORT INFORMATION
  Report Type: 
  Country: None (occurrence: None)
  Receive Date: 20090826
  Receipt Date: 20090818
  Transmission Date: 20100115
  Serious: Yes (Hospitalization)
  Sender: FDA-Public Use
  Company Number: 2009AL005442

PATIENT
  Age: 40 Year
  Sex: Female
  Weight: 65 kg

DRUGS (6)
  1. PHENYTOIN [Suspect]
     Indication: GRAND MAL CONVULSION
     Dosage: 1000 MG; X1; IV
     Route: 042
  2. CLOZAPINE [Concomitant]
  3. DESIPRAMINE  HYDROCHLORIDE TABLETS, 100 MG (AMIDE) [Concomitant]
  4. TRIHEXYPHENIDYL HCL [Concomitant]
  5. OXAZEPAM [Concomitant]
  6. PROPRANOLOL [Concomitant]

REACTIONS (5)
  - ATAXIA [None]
  - DIZZINESS [None]
  - DRUG INTERACTION [None]
  - DRUG TOXICITY [None]
  - NYSTAGMUS [None]
